FAERS Safety Report 4410735-2 (Version None)
Quarter: 2004Q3

REPORT INFORMATION
  Report Type: 
  Country: None (occurrence: None)
  Receive Date: 20040726
  Receipt Date: 20040706
  Transmission Date: 20050211
  Serious: Yes (Other)
  Sender: FDA-Public Use
  Company Number: A0357852A 2002001964-1

PATIENT
  Age: 58 Year
  Sex: Female

DRUGS (50)
  1. PAXIL [Suspect]
     Dosage: SEE DOSAGE TEXT / ORAL
     Route: 048
     Dates: start: 19930101, end: 20010101
  2. PAXIL [Suspect]
     Dates: start: 20011009, end: 20010101
  3. THYROXINE SODIUM [Concomitant]
  4. MEDROXYPROGESTERONE [Concomitant]
  5. ESTRATEST [Concomitant]
  6. TONIC [Concomitant]
  7. PENTAZOCINE HYDROCHLORIDE [Concomitant]
  8. KETOROLAC TROMETAMOL [Concomitant]
  9. MEDROXYPROGESTERONE ACE. [Concomitant]
  10. FAMOTIDINE [Concomitant]
  11. PSYLLIUM HUSK [Concomitant]
  12. ESTRATEST [Concomitant]
  13. GINSENG [Concomitant]
  14. CONJUGATED ESTROGENS [Concomitant]
  15. OMEPRAZOLE [Concomitant]
  16. SULPHACETAMIDE SODIUM [Concomitant]
  17. HYDROCHLOROTHIAZIDE [Concomitant]
  18. POTASSIUM CHLORIDE [Concomitant]
  19. CISAPRIDE [Concomitant]
  20. MULTI-VITAMIN [Concomitant]
  21. AMPICILLIN TRIHYDRATE [Concomitant]
  22. CALCIUM SALT [Concomitant]
  23. ASPIRIN [Concomitant]
  24. AMOX. TRIHYD+POT. CLAVULAN. [Concomitant]
  25. IBUPROFEN [Concomitant]
  26. PETHIDINE HYDROCHLORIDE [Concomitant]
  27. RIMANTADINE HYDROCHLORIDE [Concomitant]
  28. MEDROXYPROGESTERONE ACE. [Concomitant]
  29. ALPRAZOLAM [Concomitant]
  30. ENTEX CAP [Concomitant]
  31. DEXTROPROPOXYPHENE NAPSYL [Concomitant]
  32. PROMETHAZINE HC1 [Concomitant]
  33. VENLAFAXINE HCL [Concomitant]
  34. HYDROXYZINE [Concomitant]
  35. BUTORPHANOL TARTRATE [Concomitant]
  36. RALOXIFENE HCL [Concomitant]
  37. CELECOXIB [Concomitant]
  38. PRASTERONE [Concomitant]
  39. HERBAL  MEDICATION [Concomitant]
  40. DECONGESTANT [Concomitant]
  41. GLUCOSAMINE SULPHATE [Concomitant]
  42. MA-HUANG [Concomitant]
  43. CARNITINE [Concomitant]
  44. CHROMIUM PICOLINATE [Concomitant]
  45. FLUVOXAMINE MALEATE [Concomitant]
  46. MECLIZINE HCL [Concomitant]
  47. FEXOFENADINE HYDROCHLORID [Concomitant]
  48. HERBAL MEDICATION [Concomitant]
  49. SUMATRIPTAN SUCCINATE [Concomitant]
  50. CITALOPRAM HYDROBROMIDE [Concomitant]

REACTIONS (3)
  - CONVULSION [None]
  - DRUG DEPENDENCE [None]
  - DRUG WITHDRAWAL SYNDROME [None]
